APPROVED DRUG PRODUCT: BACTROBAN
Active Ingredient: MUPIROCIN CALCIUM
Strength: EQ 2% BASE **Federal Register determination that product was not discontinued or withdrawn for safety or effectiveness reasons**
Dosage Form/Route: CREAM;TOPICAL
Application: N050746 | Product #001
Applicant: GLAXOSMITHKLINE
Approved: Dec 11, 1997 | RLD: Yes | RS: No | Type: DISCN